FAERS Safety Report 11682338 (Version 1)
Quarter: 2015Q4

REPORT INFORMATION
  Report Type: Spontaneous
  Country: US (occurrence: None)
  Receive Date: 20151029
  Receipt Date: 20151029
  Transmission Date: 20160304
  Serious: Yes (Other)
  Sender: FDA-Public Use
  Company Number: US-MDT-ADR-2015-02041

PATIENT
  Age: 53 Year
  Sex: Male

DRUGS (2)
  1. FENTANYL INTRATHECAL 1,500 MCG/ML [Suspect]
     Active Substance: FENTANYL
     Dosage: 1,179.2 MCG/DAY
  2. BACLOFEN INTRATHECAL 400 MCG/ML [Suspect]
     Active Substance: BACLOFEN
     Indication: PAIN
     Dosage: 314.46 MCG/DAY

REACTIONS (1)
  - Drug withdrawal syndrome [None]
